FAERS Safety Report 4356294-4 (Version None)
Quarter: 2004Q2

REPORT INFORMATION
  Report Type: 
  Country: None (occurrence: None)
  Receive Date: 20040507
  Receipt Date: 20040507
  Transmission Date: 20050107
  Serious: No
  Sender: FDA-Public Use
  Company Number: None

PATIENT
  Age: 74 Year
  Sex: Male
  Weight: 86 kg

DRUGS (1)
  1. PRISMASATE BGK2/0 GAMBRO [Suspect]
     Dates: start: 20040327, end: 20040328

REACTIONS (1)
  - MEDICATION ERROR [None]
